FAERS Safety Report 19834349 (Version 1)
Quarter: 2021Q3

REPORT INFORMATION
  Report Type: Spontaneous
  Country: US (occurrence: US)
  Receive Date: 20210914
  Receipt Date: 20210914
  Transmission Date: 20211014
  Serious: Yes (Death, Other)
  Sender: FDA-Public Use
  Company Number: US-ALXN-A202110125

PATIENT
  Sex: Female

DRUGS (2)
  1. KANUMA [Suspect]
     Active Substance: SEBELIPASE ALFA
     Indication: PRODUCT USED FOR UNKNOWN INDICATION
     Dosage: 5 MG/KG, UNK
     Route: 065
  2. KANUMA [Suspect]
     Active Substance: SEBELIPASE ALFA
     Dosage: 3 MG/KG, UNK
     Route: 065

REACTIONS (7)
  - Circulatory collapse [Fatal]
  - Haemophagocytic lymphohistiocytosis [Unknown]
  - Hypercoagulation [Unknown]
  - Rash [Unknown]
  - Ventricular fibrillation [Fatal]
  - Cardiogenic shock [Fatal]
  - Arteriosclerosis coronary artery [Unknown]
